FAERS Safety Report 15494587 (Version 1)
Quarter: 2018Q4

REPORT INFORMATION
  Report Type: Spontaneous
  Country: US (occurrence: US)
  Receive Date: 20181012
  Receipt Date: 20181012
  Transmission Date: 20190205
  Serious: Yes (Other)
  Sender: FDA-Public Use
  Company Number: US-PFIZER INC-2018398962

PATIENT
  Age: 71 Year
  Sex: Female

DRUGS (5)
  1. ASPIRIN. [Concomitant]
     Active Substance: ASPIRIN
     Indication: ARTHRALGIA
     Dosage: 81 MG, AS NEEDED
     Route: 048
  2. ASPIRIN. [Concomitant]
     Active Substance: ASPIRIN
     Dosage: UNK (SOMETIMES TAKES 3 PILLS A DAY DEPENDING ON HOW HER ACHES FEEL)
  3. PRIMATENE [Suspect]
     Active Substance: EPHEDRINE HYDROCHLORIDE\GUAIFENESIN
     Dosage: 1 TABLET (12.5MG OF EPHEDRINE HCL AND 200MG OF GUAIFENESIN), AS NEEDED
     Route: 048
  4. EQUATE ALLERGY RELIEF [CETIRIZINE HYDROCHLORIDE] [Concomitant]
     Indication: HYPERSENSITIVITY
     Dosage: TAKES 2 TIMES DAILY
     Route: 048
  5. PRIMATENE [Suspect]
     Active Substance: EPHEDRINE HYDROCHLORIDE\GUAIFENESIN
     Indication: PULMONARY CONGESTION
     Dosage: 2 DF, UNK

REACTIONS (1)
  - Drug dependence [Unknown]
